APPROVED DRUG PRODUCT: NITYR
Active Ingredient: NITISINONE
Strength: 2MG
Dosage Form/Route: TABLET;ORAL
Application: N209449 | Product #001
Applicant: CYCLE PHARMACEUTICALS LTD
Approved: Jul 26, 2017 | RLD: Yes | RS: No | Type: RX

PATENTS:
Patent 10328029 | Expires: Jan 5, 2035